FAERS Safety Report 13864664 (Version 3)
Quarter: 2017Q4

REPORT INFORMATION
  Report Type: Spontaneous
  Country: US (occurrence: US)
  Receive Date: 20170814
  Receipt Date: 20171025
  Transmission Date: 20180320
  Serious: Yes (Hospitalization)
  Sender: FDA-Public Use
  Company Number: PHEH2017US025085

PATIENT
  Age: 89 Year
  Sex: Male

DRUGS (1)
  1. MOXIFLOXACIN. [Suspect]
     Active Substance: MOXIFLOXACIN
     Indication: EYE INFECTION BACTERIAL
     Route: 047

REACTIONS (4)
  - Conjunctivitis [Unknown]
  - Drug ineffective [Unknown]
  - Product dropper issue [Unknown]
  - Product packaging issue [Unknown]
